FAERS Safety Report 5023129-6 (Version None)
Quarter: 2006Q2

REPORT INFORMATION
  Report Type: 
  Country: None (occurrence: None)
  Receive Date: 20060605
  Receipt Date: 20060519
  Transmission Date: 20061013
  Serious: Yes (Death)
  Sender: FDA-Public Use
  Company Number: B0425548A

PATIENT
  Age: 91 Year
  Sex: 0

DRUGS (5)
  1. MELPHALAN (MELPHALAN) [Suspect]
     Indication: SARCOMA
     Dosage: SEE IMAGE
  2. TUMOR NECROSIS FACTOR (TUMOR NECROSIS FACTOR) [Suspect]
     Indication: SARCOMA
  3. SODIUM CHLORIDE [Concomitant]
  4. DEXTRAN 70 [Concomitant]
  5. ANESTH.FOR OP.PROCEDURE [Concomitant]

REACTIONS (2)
  - HYPERTHERMIA [None]
  - MESENTERIC ARTERY THROMBOSIS [None]
